FAERS Safety Report 16571726 (Version 3)
Quarter: 2019Q3

REPORT INFORMATION
  Report Type: Spontaneous
  Country: US (occurrence: US)
  Receive Date: 20190715
  Receipt Date: 20190822
  Transmission Date: 20191004
  Serious: No
  Sender: FDA-Public Use
  Company Number: US-PFIZER INC-2019295937

PATIENT
  Age: 64 Year
  Sex: Male
  Weight: 121.56 kg

DRUGS (2)
  1. LYRICA [Suspect]
     Active Substance: PREGABALIN
     Indication: DIABETIC NEUROPATHY
     Dosage: 100 MG, 3X/DAY
     Route: 048
     Dates: start: 2018
  2. LYRICA [Suspect]
     Active Substance: PREGABALIN
     Dosage: 400 MG, DAILY (100MG CAPSULE IN MORNING,100MG CAPSULE AFTERNOON, TWO 100MG CAPSULES NIGHT)

REACTIONS (2)
  - Drug ineffective [Unknown]
  - Off label use [Unknown]
